FAERS Safety Report 5398864-0 (Version None)
Quarter: 2007Q3

REPORT INFORMATION
  Report Type: 
  Country: None (occurrence: None)
  Receive Date: 20070727
  Receipt Date: 20070719
  Transmission Date: 20080115
  Serious: Yes (Other)
  Sender: FDA-Public Use
  Company Number: PHHO2007VE04247

PATIENT
  Age: 51 Year
  Sex: Male

DRUGS (1)
  1. DIOVAN [Suspect]
     Dosage: 320 MG, QD
     Route: 048

REACTIONS (4)
  - DRY MOUTH [None]
  - PARAESTHESIA [None]
  - PRURITUS [None]
  - THIRST [None]
